FAERS Safety Report 8112961-8 (Version None)
Quarter: 2012Q1

REPORT INFORMATION
  Report Type: 
  Country: None (occurrence: None)
  Receive Date: 20120203
  Receipt Date: 20120125
  Transmission Date: 20120608
  Serious: Yes (Other)
  Sender: FDA-Public Use
  Company Number: FR-MERCK-1201FRA00088

PATIENT
  Age: 46 Year
  Sex: Female

DRUGS (4)
  1. ISENTRESS [Suspect]
     Indication: HIV INFECTION
     Route: 048
     Dates: start: 20110523
  2. PREZISTA [Suspect]
     Route: 048
     Dates: start: 20110523
  3. NORVIR [Suspect]
     Route: 048
     Dates: start: 20110523
  4. MARAVIROC [Suspect]
     Route: 048
     Dates: start: 20110523

REACTIONS (2)
  - MAJOR DEPRESSION [None]
  - DEPRESSION [None]
